FAERS Safety Report 10034643 (Version 1)
Quarter: 2014Q1

REPORT INFORMATION
  Report Type: Spontaneous
  Country: US (occurrence: None)
  Receive Date: 20140306
  Receipt Date: 20140306
  Transmission Date: 20141002
  Serious: Yes (Other)
  Sender: FDA-Public Use
  Company Number: 163-21880-13032443

PATIENT
  Age: 69 Year
  Sex: Female

DRUGS (9)
  1. DEXAMETHASONE (DEXAMETHASONE) [Concomitant]
  2. ENALAPRIL MALEATE (ENALAPRIL MALEATE) [Concomitant]
  3. GUIATUSS (GUAIFENESIN) [Concomitant]
  4. HYDROCHLOROTHIAZIDE (HYDROCHLOROTHIAZIDE) [Concomitant]
  5. INTEGRA (INTEGRA) [Concomitant]
  6. MEGACE ORAL (MEGESTROL ACETATE) [Concomitant]
  7. REVLIMID (LENALIDOMIDE) (CAPSULES) [Suspect]
     Indication: PLASMA CELL MYELOMA
     Route: 048
     Dates: start: 20121119
  8. ACYCLOVIR (ACICLOVIR) (ACICLOVIR) [Concomitant]
  9. ALLEGRA (FEXOFENADINE HYDROCHLORIDE) [Concomitant]

REACTIONS (2)
  - Cataract [None]
  - Nasopharyngitis [None]
